FAERS Safety Report 8834691 (Version 1)
Quarter: 2012Q4

REPORT INFORMATION
  Report Type: 
  Country: US (occurrence: US)
  Receive Date: 20121010
  Receipt Date: 20121010
  Transmission Date: 20130627
  Serious: Yes (Other)
  Sender: FDA-Public Use
  Company Number: PHEH2012US019674

PATIENT
  Age: 53 Year
  Sex: Female

DRUGS (10)
  1. RECLAST [Suspect]
     Indication: OSTEOPOROSIS
     Dosage: UNK UKN, UNK
     Route: 042
     Dates: start: 20110929
  2. TYLENOL [Concomitant]
     Dosage: 650 mg, UNK
  3. CALCIUM [Concomitant]
     Dosage: 1000 mg, UNK
  4. CALCIUM [Concomitant]
     Dosage: 3000 IU, UNK
     Dates: start: 20111220
  5. VITAMIN D [Concomitant]
     Dosage: 1000 mg, UNK
  6. VITAMIN D [Concomitant]
     Dosage: 6000 IU, UNK
  7. GABAPENTIN [Concomitant]
     Indication: PAIN
     Dosage: 600 mg, QD
  8. GABAPENTIN [Concomitant]
     Indication: FIBROMYALGIA
     Dosage: 1100 mg (300,400,400mg), QD
     Dates: start: 20111021
  9. GABAPENTIN [Concomitant]
     Dosage: 900 mg, QD
     Dates: start: 20111226
  10. GABAPENTIN [Concomitant]
     Dosage: 500 mg, QD
     Dates: start: 20120813

REACTIONS (62)
  - Atelectasis [Unknown]
  - Tachycardia [Unknown]
  - Depression [Unknown]
  - Plantar fasciitis [Unknown]
  - Tendon pain [Unknown]
  - Osteoarthritis [Unknown]
  - Arthralgia [Unknown]
  - Neck pain [Not Recovered/Not Resolved]
  - Joint swelling [Unknown]
  - Joint stiffness [Not Recovered/Not Resolved]
  - Muscle spasms [Unknown]
  - Breakthrough pain [Unknown]
  - Chest pain [Unknown]
  - Musculoskeletal stiffness [Unknown]
  - Night sweats [Unknown]
  - Back pain [Not Recovered/Not Resolved]
  - Bone pain [Unknown]
  - Oedema peripheral [Unknown]
  - Pain in extremity [Not Recovered/Not Resolved]
  - Musculoskeletal pain [Not Recovered/Not Resolved]
  - Arrhythmia [Unknown]
  - Palpitations [Unknown]
  - Heart rate increased [Unknown]
  - Flushing [Unknown]
  - Paralysis [Unknown]
  - Blood parathyroid hormone increased [Unknown]
  - Weight increased [Unknown]
  - Balance disorder [Unknown]
  - General physical health deterioration [Unknown]
  - Hot flush [Unknown]
  - Toothache [Unknown]
  - Vomiting [Unknown]
  - Influenza [Unknown]
  - Headache [Unknown]
  - Fatigue [Unknown]
  - Myalgia [Unknown]
  - Malaise [Unknown]
  - Device difficult to use [Unknown]
  - Herpes zoster oticus [Recovered/Resolved]
  - Lip disorder [Unknown]
  - Eyelid disorder [Unknown]
  - Dysphagia [Unknown]
  - Ear pain [Unknown]
  - Neuralgia [Unknown]
  - Blister [Unknown]
  - Mastication disorder [Unknown]
  - Pain [Not Recovered/Not Resolved]
  - Lip blister [Unknown]
  - Rash macular [Not Recovered/Not Resolved]
  - Hypoacusis [Unknown]
  - Oropharyngeal pain [Unknown]
  - Oral discomfort [Unknown]
  - Oral herpes [Unknown]
  - Pyrexia [Unknown]
  - Chills [Unknown]
  - Chest discomfort [Unknown]
  - Scab [Unknown]
  - External ear pain [Unknown]
  - Bronchitis [Unknown]
  - Wheezing [Unknown]
  - Cough [Unknown]
  - Productive cough [Unknown]
